FAERS Safety Report 5192970-1 (Version None)
Quarter: 2006Q4

REPORT INFORMATION
  Report Type: 
  Country: None (occurrence: None)
  Receive Date: 20061228
  Receipt Date: 20060328
  Transmission Date: 20070319
  Serious: No
  Sender: FDA-Public Use
  Company Number: US-GLAXOSMITHKLINE-A0599374A

PATIENT
  Sex: Female

DRUGS (5)
  1. FLONASE [Suspect]
     Route: 045
  2. ACTOS [Concomitant]
  3. LIPITOR [Concomitant]
  4. SYNTHROID [Concomitant]
  5. ACCUPRIL [Concomitant]

REACTIONS (4)
  - BLOOD URIC ACID INCREASED [None]
  - GOUTY ARTHRITIS [None]
  - LOCAL SWELLING [None]
  - MUSCULOSKELETAL PAIN [None]
